FAERS Safety Report 26131946 (Version 1)
Quarter: 2025Q4

REPORT INFORMATION
  Report Type: Spontaneous
  Country: KW (occurrence: KW)
  Receive Date: 20251208
  Receipt Date: 20251208
  Transmission Date: 20260117
  Serious: Yes (Hospitalization)
  Sender: PFIZER
  Company Number: KW-PFIZER INC-PV202500087389

PATIENT
  Age: 43 Year
  Sex: Female

DRUGS (4)
  1. ZIRABEV [Suspect]
     Active Substance: BEVACIZUMAB-BVZR
     Indication: Colon cancer metastatic
     Dosage: 315 MG, ONCE EVERY 2 WEEKS
     Route: 042
     Dates: start: 202505
  2. ZIRABEV [Suspect]
     Active Substance: BEVACIZUMAB-BVZR
     Indication: Rectal cancer metastatic
     Dosage: 400 MG, EVERY 2 WEEKS
     Route: 042
     Dates: start: 20250718
  3. ZIRABEV [Suspect]
     Active Substance: BEVACIZUMAB-BVZR
     Dosage: 315 MG, EVERY 2 WEEKS
     Route: 042
     Dates: start: 2025
  4. FLUOROURACIL\IRINOTECAN\LEUCOVORIN [Concomitant]
     Active Substance: FLUOROURACIL\IRINOTECAN\LEUCOVORIN
     Indication: Chemotherapy
     Dosage: UNK

REACTIONS (5)
  - Renal function test abnormal [Unknown]
  - Dehydration [Unknown]
  - Fistula [Unknown]
  - Inflammation [Unknown]
  - Pyrexia [Unknown]

NARRATIVE: CASE EVENT DATE: 20250101
